FAERS Safety Report 19466017 (Version 1)
Quarter: 2021Q2

REPORT INFORMATION
  Report Type: Spontaneous
  Country: US (occurrence: US)
  Receive Date: 20210625
  Receipt Date: 20210625
  Transmission Date: 20210717
  Serious: No
  Sender: FDA-Public Use
  Company Number: US-DRREDDYS-SPO/USA/21/0136819

PATIENT
  Age: 61 Year
  Sex: Male
  Weight: 83.25 kg

DRUGS (1)
  1. HABITROL [Suspect]
     Active Substance: NICOTINE
     Indication: TOBACCO USER
     Dosage: ONE PATCH DAILY
     Route: 062
     Dates: start: 202106

REACTIONS (4)
  - Product quality issue [Unknown]
  - Nicotine dependence [Unknown]
  - Drug ineffective [Unknown]
  - Treatment noncompliance [Unknown]
